FAERS Safety Report 23830107 (Version 1)
Quarter: 2024Q2

REPORT INFORMATION
  Report Type: Spontaneous
  Country: IN (occurrence: IN)
  Receive Date: 20240508
  Receipt Date: 20240508
  Transmission Date: 20240716
  Serious: Yes (Hospitalization, Other)
  Sender: FDA-Public Use
  Company Number: IN-NOVAST LABORATORIES INC.-2024NOV000232

PATIENT
  Age: 40 Year
  Sex: Male

DRUGS (1)
  1. GEMCITABINE HYDROCHLORIDE [Suspect]
     Active Substance: GEMCITABINE HYDROCHLORIDE
     Indication: Small intestine carcinoma
     Dosage: 3500, 3 CYCLES
     Route: 065

REACTIONS (4)
  - Nephrotic syndrome [Recovering/Resolving]
  - Thrombotic microangiopathy [Recovered/Resolved]
  - Posterior reversible encephalopathy syndrome [Recovering/Resolving]
  - Product use in unapproved indication [Unknown]
